FAERS Safety Report 20131446 (Version 1)
Quarter: 2021Q4

REPORT INFORMATION
  Report Type: Spontaneous
  Country: US (occurrence: US)
  Receive Date: 20211130
  Receipt Date: 20211130
  Transmission Date: 20220303
  Serious: No
  Sender: FDA-Public Use
  Company Number: US-GW PHARMA-202111USGW05822

PATIENT

DRUGS (2)
  1. EPIDIOLEX [Suspect]
     Active Substance: CANNABIDIOL
     Indication: Lennox-Gastaut syndrome
     Dosage: 250 MILLIGRAM
     Route: 048
     Dates: start: 20200326
  2. EPIDIOLEX [Suspect]
     Active Substance: CANNABIDIOL
     Indication: Status epilepticus

REACTIONS (1)
  - Weight abnormal [Unknown]
